FAERS Safety Report 5224977-X (Version None)
Quarter: 2007Q1

REPORT INFORMATION
  Report Type: 
  Country: None (occurrence: None)
  Receive Date: 20070131
  Receipt Date: 20070129
  Transmission Date: 20070707
  Serious: Yes (Disabling)
  Sender: FDA-Public Use
  Company Number: GB-BRISTOL-MYERS SQUIBB COMPANY-13661160

PATIENT
  Age: 6 Year
  Sex: Male

DRUGS (5)
  1. VINCRISTINE SULFATE [Suspect]
     Indication: PRIMITIVE NEUROECTODERMAL TUMOUR
  2. ETOPOSIDE [Suspect]
     Indication: PRIMITIVE NEUROECTODERMAL TUMOUR
  3. CISPLATIN [Suspect]
     Indication: PRIMITIVE NEUROECTODERMAL TUMOUR
  4. CYCLOPHOSPHAMIDE [Suspect]
     Indication: PRIMITIVE NEUROECTODERMAL TUMOUR
  5. RADIATION THERAPY [Concomitant]
     Indication: PRIMITIVE NEUROECTODERMAL TUMOUR

REACTIONS (1)
  - OPTIC ATROPHY [None]
